FAERS Safety Report 5029422-5 (Version None)
Quarter: 2006Q2

REPORT INFORMATION
  Report Type: 
  Country: None (occurrence: None)
  Receive Date: 20060613
  Receipt Date: 20060602
  Transmission Date: 20061013
  Serious: Yes (Life-Threatening, Hospitalization)
  Sender: FDA-Public Use
  Company Number: 2006053126

PATIENT
  Age: 65 Year
  Sex: Male

DRUGS (2)
  1. TAHOR (ATORVASTATIN) [Suspect]
     Indication: PROPHYLAXIS
     Dosage: 10 MG, (DAILY), ORAL
     Route: 048
     Dates: start: 20060201, end: 20060413
  2. RYTHMODAN (DISOPYRAMIDE) [Concomitant]

REACTIONS (5)
  - ACUTE PULMONARY OEDEMA [None]
  - DIALYSIS [None]
  - HYPERKALAEMIA [None]
  - RENAL FAILURE ACUTE [None]
  - RHABDOMYOLYSIS [None]
